FAERS Safety Report 22592487 (Version 1)
Quarter: 2023Q2

REPORT INFORMATION
  Report Type: Spontaneous
  Country: US (occurrence: US)
  Receive Date: 20230613
  Receipt Date: 20230613
  Transmission Date: 20230722
  Serious: No
  Sender: FDA-Public Use
  Company Number: US-TEVA-2023-US-2891782

PATIENT
  Age: 74 Year
  Sex: Male

DRUGS (1)
  1. CILOSTAZOL [Suspect]
     Active Substance: CILOSTAZOL
     Indication: Prophylaxis
     Dosage: 100 MILLIGRAM DAILY;
     Route: 065

REACTIONS (2)
  - Headache [Not Recovered/Not Resolved]
  - Off label use [Unknown]
